FAERS Safety Report 7918596-1 (Version None)
Quarter: 2011Q4

REPORT INFORMATION
  Report Type: 
  Country: None (occurrence: None)
  Receive Date: 20111116
  Receipt Date: 20111115
  Transmission Date: 20120403
  Serious: Yes (Hospitalization)
  Sender: FDA-Public Use
  Company Number: US-BRACCO-006570

PATIENT
  Sex: Male
  Weight: 100 kg

DRUGS (6)
  1. PREVACID [Concomitant]
  2. NEURONTIN [Concomitant]
  3. MULTIHANCE [Suspect]
     Indication: SPINAL FUSION SURGERY
     Route: 042
     Dates: start: 20110729, end: 20110729
  4. PERCOCET [Concomitant]
  5. MULTIHANCE [Suspect]
     Indication: NUCLEAR MAGNETIC RESONANCE IMAGING
     Route: 042
     Dates: start: 20110729, end: 20110729
  6. OXYCODONE HCL [Concomitant]

REACTIONS (1)
  - ANAPHYLACTIC REACTION [None]
